FAERS Safety Report 8882289 (Version 3)
Quarter: 2013Q1

REPORT INFORMATION
  Report Type: Spontaneous
  Country: JP (occurrence: JP)
  Receive Date: 20121102
  Receipt Date: 20130205
  Transmission Date: 20140127
  Serious: Yes (Hospitalization)
  Sender: FDA-Public Use
  Company Number: JP-PFIZER INC-2012159639

PATIENT
  Age: 70 Year
  Sex: Female
  Weight: 50 kg

DRUGS (17)
  1. CELECOX [Suspect]
     Indication: BACK PAIN
     Dosage: 100 MG, 2X/DAY
     Route: 048
     Dates: start: 20120424, end: 20120429
  2. LYRICA [Suspect]
     Indication: NEURALGIA
     Dosage: 75 MG, 2X/DAY
     Route: 048
     Dates: start: 20120403, end: 20120429
  3. BAYASPIRIN [Concomitant]
     Indication: ANGINA PECTORIS
     Dosage: 100 MG, 1X/DAY
     Route: 048
     Dates: start: 2007
  4. EPINASTINE [Concomitant]
     Indication: PRURITUS
     Dosage: 20 MG, 1X/DAY
     Route: 048
     Dates: start: 2007
  5. METLIGINE [Concomitant]
     Indication: HYPOTENSION
     Dosage: 2 MG, 2X/DAY
     Route: 048
     Dates: start: 2007
  6. ITOROL [Concomitant]
     Indication: ANGINA PECTORIS
     Dosage: 20 MG, 2X/DAY
     Route: 048
     Dates: start: 2007
  7. URSO [Concomitant]
     Indication: HEPATITIS C
     Dosage: 200 MG, 3X/DAY
     Route: 048
     Dates: start: 2007
  8. SELBEX [Concomitant]
     Indication: GASTRITIS
     Dosage: 0.5 G, 3X/DAY
     Route: 048
     Dates: start: 2007
  9. MAGMITT [Concomitant]
     Indication: CONSTIPATION
     Dosage: 250 MG, 3X/DAY
     Route: 048
     Dates: start: 2007
  10. LENDEM [Concomitant]
     Indication: INSOMNIA
     Dosage: 0.25 MG, 1X/DAY
     Route: 048
     Dates: start: 2007
  11. AFTACH [Concomitant]
     Indication: STOMATITIS
     Dosage: 25 UG, 1X/DAY
     Route: 062
     Dates: start: 2007
  12. DEPAS [Concomitant]
     Indication: INSOMNIA
     Dosage: 0.5 MG, 1X/DAY
     Route: 048
     Dates: start: 2007
  13. MEILAX [Concomitant]
     Indication: INSOMNIA
     Dosage: 1 MG, 1X/DAY
     Route: 048
     Dates: start: 2007
  14. PATELL [Concomitant]
     Indication: LUMBAR SPINAL STENOSIS
     Dosage: 1 DF, 1X/DAY
     Route: 062
     Dates: start: 2007
  15. DAIMEDINE3B [Concomitant]
     Indication: CHEILITIS
     Dosage: UNK
     Route: 048
     Dates: start: 2007
  16. ATEMINON [Concomitant]
     Indication: GASTRITIS
     Dosage: 150 MG, 1X/DAY
     Route: 048
     Dates: start: 2007
  17. PRAVAMATE [Concomitant]
     Indication: HYPERLIPIDAEMIA
     Dosage: 20 MG, 1X/DAY
     Route: 048
     Dates: start: 2007

REACTIONS (1)
  - Erythema multiforme [Recovered/Resolved]
